FAERS Safety Report 12673240 (Version 1)
Quarter: 2016Q3

REPORT INFORMATION
  Report Type: Report from Study
  Country: BR (occurrence: BR)
  Receive Date: 20160822
  Receipt Date: 20160822
  Transmission Date: 20161109
  Serious: Yes (Hospitalization)
  Sender: FDA-Public Use
  Company Number: PHHY2016BR099515

PATIENT
  Sex: Male
  Weight: 95 kg

DRUGS (1)
  1. EXJADE [Suspect]
     Active Substance: DEFERASIROX
     Indication: MYELODYSPLASTIC SYNDROME
     Dosage: 20 MG/KG (2000 MG; 4 TABLETS OF 500 MG), QD
     Route: 048

REACTIONS (4)
  - Kidney infection [Unknown]
  - Bacterial infection [Unknown]
  - Post procedural complication [Unknown]
  - Asthenia [Unknown]
